FAERS Safety Report 8924856 (Version 1)
Quarter: 2012Q4

REPORT INFORMATION
  Report Type: 
  Country: US (occurrence: US)
  Receive Date: 20121126
  Receipt Date: 20121126
  Transmission Date: 20130627
  Serious: Yes (Other)
  Sender: FDA-Public Use
  Company Number: US-ASTRAZENECA-2012SE86564

PATIENT
  Sex: Female

DRUGS (15)
  1. SYMBICORT [Suspect]
     Indication: ASTHMA
     Dosage: 80/ 4.5 MCG, 2 PUFFS, BID
     Route: 055
     Dates: start: 201207
  2. ALBUTEROL [Concomitant]
     Indication: PROPHYLAXIS AGAINST BRONCHOSPASM
     Dosage: PRN, 4-5 TIMES A DAY
     Route: 055
  3. PROAIR HFA [Concomitant]
     Dosage: UNKNOWN
     Route: 055
  4. VERAMYST [Concomitant]
     Dosage: UNKNOWN
     Route: 055
  5. MICROGESTIN [Concomitant]
     Dosage: UNKNOWN
  6. FLUOXETINE [Concomitant]
     Dosage: UNKNOWN
  7. XYZAL [Concomitant]
     Dosage: UNKNOWN
  8. ASTEPRO [Concomitant]
     Dosage: UNKNOWN
  9. PATADAY [Concomitant]
     Dosage: UNKNOWN
  10. NEURONTIN [Concomitant]
  11. EPIPEN [Concomitant]
     Dosage: PRN
  12. AMBIEN [Concomitant]
     Dosage: HS
  13. SUDAFED [Concomitant]
     Dosage: PRN
  14. VISTARIL [Concomitant]
  15. BENADRYL [Concomitant]
     Dosage: PRN

REACTIONS (6)
  - Grand mal convulsion [Unknown]
  - Dehydration [Unknown]
  - Asthma [Unknown]
  - Blood glucose decreased [Unknown]
  - Cough [Unknown]
  - Dizziness [Unknown]
